FAERS Safety Report 9599210 (Version 1)
Quarter: 2013Q4

REPORT INFORMATION
  Report Type: Spontaneous
  Country: US (occurrence: US)
  Receive Date: 20131004
  Receipt Date: 20131004
  Transmission Date: 20140711
  Serious: No
  Sender: FDA-Public Use
  Company Number: US-AMGEN-USASP2013028170

PATIENT
  Age: 61 Year
  Sex: Female

DRUGS (11)
  1. ENBREL [Suspect]
     Indication: PRODUCT USED FOR UNKNOWN INDICATION
     Dosage: 50 MG, QWK
     Route: 058
  2. AMBIEN [Concomitant]
     Dosage: 5 MG, UNK
  3. FUROSEMIDE [Concomitant]
     Dosage: 20 MG, UNK
  4. METHOTREXATE [Concomitant]
     Dosage: 2.5 MG, UNK
  5. DIOVAN [Concomitant]
     Dosage: 40 MG, UNK
  6. VENLAFAXINE [Concomitant]
     Dosage: 37.5 MG, UNK
  7. BUPROPION [Concomitant]
     Dosage: 75 MG, UNK
  8. MORPHINE SULFATE [Concomitant]
     Dosage: 20 MG, ER
  9. FLEXERIL                           /00428402/ [Concomitant]
     Dosage: 5 MG, UNK
  10. FOLIC ACID [Concomitant]
     Dosage: UNK
  11. ETODOLAC [Concomitant]
     Dosage: 200 MG, UNK

REACTIONS (1)
  - Injection site pain [Unknown]
